FAERS Safety Report 21712959 (Version 3)
Quarter: 2022Q4

REPORT INFORMATION
  Report Type: Spontaneous
  Country: US (occurrence: US)
  Receive Date: 20221212
  Receipt Date: 20221220
  Transmission Date: 20230113
  Serious: No
  Sender: FDA-Public Use
  Company Number: US-SANOFI-01399688

PATIENT
  Age: 89 Year
  Sex: Female

DRUGS (3)
  1. AMBIEN [Interacting]
     Active Substance: ZOLPIDEM TARTRATE
     Indication: Insomnia
     Dosage: 5 MG, QD
     Route: 065
  2. XANAX [Interacting]
     Active Substance: ALPRAZOLAM
     Indication: Sleep disorder
     Dosage: 2 MG
  3. XANAX [Interacting]
     Active Substance: ALPRAZOLAM
     Dosage: 5 MG

REACTIONS (10)
  - Withdrawal syndrome [Unknown]
  - Heart rate increased [Unknown]
  - Agitation [Unknown]
  - Nausea [Unknown]
  - Drug tolerance [Unknown]
  - Intentional overdose [Unknown]
  - Drug interaction [Unknown]
  - Product use in unapproved indication [Unknown]
  - Drug ineffective [Unknown]
  - Wrong technique in product usage process [Unknown]
